FAERS Safety Report 7767636-1 (Version None)
Quarter: 2011Q3

REPORT INFORMATION
  Report Type: 
  Country: None (occurrence: None)
  Receive Date: 20110922
  Receipt Date: 20110916
  Transmission Date: 20111222
  Serious: Yes (Hospitalization)
  Sender: FDA-Public Use
  Company Number: US-TEVA-301306USA

PATIENT
  Sex: Male

DRUGS (1)
  1. PENICILLIN [Suspect]

REACTIONS (2)
  - VISUAL IMPAIRMENT [None]
  - BLOOD GLUCOSE INCREASED [None]
